FAERS Safety Report 7708758-0 (Version None)
Quarter: 2011Q3

REPORT INFORMATION
  Report Type: 
  Country: None (occurrence: None)
  Receive Date: 20110825
  Receipt Date: 20110825
  Transmission Date: 20111222
  Serious: No
  Sender: FDA-Public Use
  Company Number: None

PATIENT
  Age: 42 Year
  Sex: Male
  Weight: 104.32 kg

DRUGS (2)
  1. BEVACIZUMAB [Suspect]
     Indication: RETINAL VEIN OCCLUSION
     Dosage: 1.25MG
     Route: 031
  2. BEVACIZUMAB [Suspect]
     Indication: MACULAR OEDEMA
     Dosage: 1.25MG
     Route: 031

REACTIONS (3)
  - VISUAL ACUITY REDUCED [None]
  - EYE PAIN [None]
  - INJECTION SITE REACTION [None]
